FAERS Safety Report 17295217 (Version 7)
Quarter: 2020Q2

REPORT INFORMATION
  Report Type: Spontaneous
  Country: US (occurrence: US)
  Receive Date: 20200121
  Receipt Date: 20200623
  Transmission Date: 20200713
  Serious: Yes (Other)
  Sender: FDA-Public Use
  Company Number: US-PFIZER INC-2020021450

PATIENT
  Age: 62 Year
  Sex: Female

DRUGS (1)
  1. XELJANZ [Suspect]
     Active Substance: TOFACITINIB CITRATE
     Dosage: 5 MG, 1X/DAY

REACTIONS (8)
  - Anxiety [Unknown]
  - Lung disorder [Unknown]
  - Polyp [Unknown]
  - Depression [Unknown]
  - Asthma [Unknown]
  - Wrong dose [Unknown]
  - Intestinal obstruction [Unknown]
  - Precancerous lesion of digestive tract [Unknown]
